FAERS Safety Report 10686098 (Version 2)
Quarter: 2015Q1

REPORT INFORMATION
  Report Type: Report from Study
  Country: US (occurrence: US)
  Receive Date: 20141231
  Receipt Date: 20150306
  Transmission Date: 20150720
  Serious: Yes (Death)
  Sender: FDA-Public Use
  Company Number: US-ASTELLAS-2014US021355

PATIENT
  Age: 56 Year
  Sex: Male

DRUGS (82)
  1. AVASTIN [Suspect]
     Active Substance: BEVACIZUMAB
     Route: 042
     Dates: start: 20070223
  2. IRINOTECAN [Suspect]
     Active Substance: IRINOTECAN
     Route: 042
     Dates: start: 20061215
  3. ATIVAN [Concomitant]
     Active Substance: LORAZEPAM
     Route: 042
     Dates: start: 20060922
  4. ATIVAN [Concomitant]
     Active Substance: LORAZEPAM
     Route: 042
     Dates: start: 20061006
  5. ATROPINE [Concomitant]
     Active Substance: ATROPINE
     Dosage: 0.4 MG, UNKNOWN FREQ.
     Route: 042
     Dates: start: 20061201
  6. IRINOTECAN [Suspect]
     Active Substance: IRINOTECAN
     Route: 042
     Dates: start: 20061103
  7. ATIVAN [Concomitant]
     Active Substance: LORAZEPAM
     Route: 042
     Dates: start: 20061117
  8. ATIVAN [Concomitant]
     Active Substance: LORAZEPAM
     Route: 042
     Dates: start: 20061201
  9. ATIVAN [Concomitant]
     Active Substance: LORAZEPAM
     Route: 042
     Dates: start: 20061229
  10. ATROPINE [Concomitant]
     Active Substance: ATROPINE
     Dosage: 0.4 MG, UNKNOWN FREQ.
     Route: 042
     Dates: start: 20061215
  11. ATROPINE [Concomitant]
     Active Substance: ATROPINE
     Dosage: 0.4 MG, UNKNOWN FREQ.
     Route: 042
     Dates: start: 20070112
  12. ATROPINE [Concomitant]
     Active Substance: ATROPINE
     Dosage: 0.4 MG, UNKNOWN FREQ.
     Route: 042
     Dates: start: 20070126
  13. DECADRON [Concomitant]
     Active Substance: DEXAMETHASONE
     Dosage: 20 MG, IN 100 CC NS,UNKNOWN FREQ.
     Route: 065
     Dates: start: 20061117
  14. DECADRON [Concomitant]
     Active Substance: DEXAMETHASONE
     Dosage: 20 MG, IN 100 CC NS,UNKNOWN FREQ.
     Route: 065
     Dates: start: 20061215
  15. DECADRON [Concomitant]
     Active Substance: DEXAMETHASONE
     Dosage: 20 MG, IN 100 CC NS,UNKNOWN FREQ.
     Route: 065
     Dates: start: 20070209
  16. ALOXI [Concomitant]
     Active Substance: PALONOSETRON HYDROCHLORIDE
     Dosage: 2.5 MG, IN 100 CC NS, UNKNOWN FREQ.
     Route: 042
     Dates: start: 20061103
  17. ALOXI [Concomitant]
     Active Substance: PALONOSETRON HYDROCHLORIDE
     Dosage: 2.5 MG, IN 100 CC NS, UNKNOWN FREQ.
     Route: 042
     Dates: start: 20061215
  18. AVASTIN [Suspect]
     Active Substance: BEVACIZUMAB
     Route: 042
     Dates: start: 20061201
  19. AVASTIN [Suspect]
     Active Substance: BEVACIZUMAB
     Route: 042
     Dates: start: 20061215
  20. IRINOTECAN [Suspect]
     Active Substance: IRINOTECAN
     Route: 042
     Dates: start: 20060818
  21. IRINOTECAN [Suspect]
     Active Substance: IRINOTECAN
     Route: 042
     Dates: start: 20070223
  22. GRANISETRON                        /01178102/ [Concomitant]
     Active Substance: GRANISETRON
     Indication: PRODUCT USED FOR UNKNOWN INDICATION
     Dosage: UNK, UNKNOWN FREQ.
     Route: 065
  23. ATIVAN [Concomitant]
     Active Substance: LORAZEPAM
     Route: 042
     Dates: start: 20061103
  24. ATROPINE [Concomitant]
     Active Substance: ATROPINE
     Dosage: 0.4 MG, UNKNOWN FREQ.
     Route: 042
     Dates: start: 20061103
  25. DECADRON [Concomitant]
     Active Substance: DEXAMETHASONE
     Dosage: 20 MG, IN 100 CC NS,UNKNOWN FREQ.
     Route: 065
     Dates: start: 20070126
  26. DECADRON [Concomitant]
     Active Substance: DEXAMETHASONE
     Dosage: 20 MG, IN 100 CC NS,UNKNOWN FREQ.
     Route: 065
     Dates: start: 20070223
  27. ALOXI [Concomitant]
     Active Substance: PALONOSETRON HYDROCHLORIDE
     Dosage: 2.5 MG, IN 100 CC NS, UNKNOWN FREQ.
     Route: 042
     Dates: start: 20061006
  28. ALOXI [Concomitant]
     Active Substance: PALONOSETRON HYDROCHLORIDE
     Dosage: 2.5 MG, IN 100 CC NS, UNKNOWN FREQ.
     Route: 042
     Dates: start: 20070209
  29. ERLOTINIB [Suspect]
     Active Substance: ERLOTINIB
     Indication: PRODUCT USED FOR UNKNOWN INDICATION
     Dosage: UNK UNK, UNKNOWN FREQ.
     Route: 065
  30. AVASTIN [Suspect]
     Active Substance: BEVACIZUMAB
     Route: 042
     Dates: start: 20061117
  31. AVASTIN [Suspect]
     Active Substance: BEVACIZUMAB
     Route: 042
     Dates: start: 20070126
  32. IRINOTECAN [Suspect]
     Active Substance: IRINOTECAN
     Route: 042
     Dates: start: 20061229
  33. IRINOTECAN [Suspect]
     Active Substance: IRINOTECAN
     Route: 042
     Dates: start: 20070126
  34. ATIVAN [Concomitant]
     Active Substance: LORAZEPAM
     Route: 042
     Dates: start: 20060825
  35. ATIVAN [Concomitant]
     Active Substance: LORAZEPAM
     Route: 042
     Dates: start: 20061020
  36. ATIVAN [Concomitant]
     Active Substance: LORAZEPAM
     Route: 042
     Dates: start: 20070112
  37. ATROPINE [Concomitant]
     Active Substance: ATROPINE
     Dosage: 0.4 MG, UNKNOWN FREQ.
     Route: 042
     Dates: start: 20060922
  38. ATROPINE [Concomitant]
     Active Substance: ATROPINE
     Dosage: 0.4 MG, UNKNOWN FREQ.
     Route: 042
     Dates: start: 20061229
  39. DECADRON [Concomitant]
     Active Substance: DEXAMETHASONE
     Dosage: 20 MG, IN 100 CC NS,UNKNOWN FREQ.
     Route: 065
     Dates: start: 20070112
  40. ALOXI [Concomitant]
     Active Substance: PALONOSETRON HYDROCHLORIDE
     Dosage: 2.5 MG, IN 100 CC NS, UNKNOWN FREQ.
     Route: 042
     Dates: start: 20060908
  41. REGLAN [Concomitant]
     Active Substance: METOCLOPRAMIDE HYDROCHLORIDE
     Indication: PRODUCT USED FOR UNKNOWN INDICATION
     Dosage: UNK UNK, THRICE DAILY
     Route: 065
  42. PROTONIX [Concomitant]
     Active Substance: PANTOPRAZOLE SODIUM
     Indication: PRODUCT USED FOR UNKNOWN INDICATION
     Route: 065
     Dates: start: 20070112
  43. AVASTIN [Suspect]
     Active Substance: BEVACIZUMAB
     Route: 042
     Dates: start: 20070112
  44. IRINOTECAN [Suspect]
     Active Substance: IRINOTECAN
     Route: 042
     Dates: start: 20060908
  45. IRINOTECAN [Suspect]
     Active Substance: IRINOTECAN
     Route: 042
     Dates: start: 20061020
  46. IRINOTECAN [Suspect]
     Active Substance: IRINOTECAN
     Route: 042
     Dates: start: 20070209
  47. ATROPINE [Concomitant]
     Active Substance: ATROPINE
     Dosage: 0.4 MG, UNKNOWN FREQ.
     Route: 042
     Dates: start: 20060908
  48. ATROPINE [Concomitant]
     Active Substance: ATROPINE
     Dosage: 0.4 MG, UNKNOWN FREQ.
     Route: 042
     Dates: start: 20070223
  49. DECADRON [Concomitant]
     Active Substance: DEXAMETHASONE
     Dosage: 20 MG, IN 100 CC NS,UNKNOWN FREQ.
     Route: 065
     Dates: start: 20071020
  50. ALOXI [Concomitant]
     Active Substance: PALONOSETRON HYDROCHLORIDE
     Dosage: 2.5 MG, IN 100 CC NS, UNKNOWN FREQ.
     Route: 042
     Dates: start: 20060922
  51. ALOXI [Concomitant]
     Active Substance: PALONOSETRON HYDROCHLORIDE
     Dosage: 2.5 MG, IN 100 CC NS, UNKNOWN FREQ.
     Route: 042
     Dates: start: 20061117
  52. ALOXI [Concomitant]
     Active Substance: PALONOSETRON HYDROCHLORIDE
     Dosage: 2.5 MG, IN 100 CC NS, UNKNOWN FREQ.
     Route: 042
     Dates: start: 20061201
  53. ALOXI [Concomitant]
     Active Substance: PALONOSETRON HYDROCHLORIDE
     Dosage: 2.5 MG, IN 100 CC NS, UNKNOWN FREQ.
     Route: 042
     Dates: start: 20070126
  54. AVASTIN [Suspect]
     Active Substance: BEVACIZUMAB
     Indication: BRAIN NEOPLASM MALIGNANT
     Dosage: 590 MG, IN 100 CC NS EVERY 2 WEEKS
     Route: 042
     Dates: start: 20060811
  55. AVASTIN [Suspect]
     Active Substance: BEVACIZUMAB
     Indication: GLIOBLASTOMA
     Route: 042
     Dates: start: 20060922
  56. AVASTIN [Suspect]
     Active Substance: BEVACIZUMAB
     Route: 042
     Dates: start: 20061020
  57. AVASTIN [Suspect]
     Active Substance: BEVACIZUMAB
     Route: 042
     Dates: start: 20061229
  58. AVASTIN [Suspect]
     Active Substance: BEVACIZUMAB
     Route: 042
     Dates: start: 20070209
  59. IRINOTECAN [Suspect]
     Active Substance: IRINOTECAN
     Indication: BRAIN NEOPLASM MALIGNANT
     Dosage: 226 MG, IN 250 ML NS  ONCE WEEKLY
     Route: 042
     Dates: start: 20060811
  60. ATIVAN [Concomitant]
     Active Substance: LORAZEPAM
     Route: 042
     Dates: start: 20060908
  61. ATIVAN [Concomitant]
     Active Substance: LORAZEPAM
     Route: 042
     Dates: start: 20061215
  62. DECADRON [Concomitant]
     Active Substance: DEXAMETHASONE
     Indication: PRODUCT USED FOR UNKNOWN INDICATION
     Dosage: 20 MG, IN 100 CC NS,UNKNOWN FREQ.
     Route: 065
     Dates: start: 20061006
  63. DECADRON [Concomitant]
     Active Substance: DEXAMETHASONE
     Dosage: 20 MG, IN 100 CC NS,UNKNOWN FREQ.
     Route: 065
     Dates: start: 20061201
  64. ALOXI [Concomitant]
     Active Substance: PALONOSETRON HYDROCHLORIDE
     Indication: PRODUCT USED FOR UNKNOWN INDICATION
     Dosage: 0.25 MG,IN 100 CC NS, UNKNOWN FREQ.
     Route: 042
     Dates: start: 20060811
  65. ALOXI [Concomitant]
     Active Substance: PALONOSETRON HYDROCHLORIDE
     Dosage: 2.5 MG, IN 100 CC NS, UNKNOWN FREQ.
     Route: 042
     Dates: start: 20061229
  66. ALOXI [Concomitant]
     Active Substance: PALONOSETRON HYDROCHLORIDE
     Dosage: 2.5 MG, IN 100 CC NS, UNKNOWN FREQ.
     Route: 042
     Dates: start: 20070223
  67. AVASTIN [Suspect]
     Active Substance: BEVACIZUMAB
     Route: 042
     Dates: start: 20061103
  68. IRINOTECAN [Suspect]
     Active Substance: IRINOTECAN
     Route: 042
     Dates: start: 20061006
  69. IRINOTECAN [Suspect]
     Active Substance: IRINOTECAN
     Route: 042
     Dates: start: 20070112
  70. ATROPINE [Concomitant]
     Active Substance: ATROPINE
     Dosage: 0.4 MG, UNKNOWN FREQ.
     Route: 042
     Dates: start: 20060825
  71. AVASTIN [Suspect]
     Active Substance: BEVACIZUMAB
     Route: 042
     Dates: start: 20061006
  72. IRINOTECAN [Suspect]
     Active Substance: IRINOTECAN
     Route: 042
     Dates: start: 20060922
  73. IRINOTECAN [Suspect]
     Active Substance: IRINOTECAN
     Route: 042
     Dates: start: 20061117
  74. IRINOTECAN [Suspect]
     Active Substance: IRINOTECAN
     Route: 042
     Dates: start: 20061201
  75. CELEXA [Suspect]
     Active Substance: CITALOPRAM HYDROBROMIDE
     Indication: PRODUCT USED FOR UNKNOWN INDICATION
     Dosage: UNK UNK, UNKNOWN FREQ.
     Route: 065
  76. ATIVAN [Concomitant]
     Active Substance: LORAZEPAM
     Indication: ANXIETY
     Route: 042
     Dates: start: 20060811
  77. ATROPINE [Concomitant]
     Active Substance: ATROPINE
     Indication: PRODUCT USED FOR UNKNOWN INDICATION
     Dosage: 0.4 MG, UNKNOWN FREQ.
     Route: 042
     Dates: start: 20060811
  78. ATROPINE [Concomitant]
     Active Substance: ATROPINE
     Dosage: 0.4 MG, UNKNOWN FREQ.
     Route: 042
     Dates: start: 20061006
  79. ATROPINE [Concomitant]
     Active Substance: ATROPINE
     Dosage: 0.4 MG, UNKNOWN FREQ.
     Route: 042
     Dates: start: 20061020
  80. ATROPINE [Concomitant]
     Active Substance: ATROPINE
     Dosage: 0.4 MG, UNKNOWN FREQ.
     Route: 042
     Dates: start: 20070209
  81. DECADRON [Concomitant]
     Active Substance: DEXAMETHASONE
     Dosage: 20 MG, IN 100 CC NS,UNKNOWN FREQ.
     Route: 065
     Dates: start: 20061229
  82. LORAZEPAM. [Concomitant]
     Active Substance: LORAZEPAM
     Indication: PRODUCT USED FOR UNKNOWN INDICATION
     Route: 065
     Dates: start: 20061031

REACTIONS (12)
  - Toothache [Unknown]
  - Epistaxis [Unknown]
  - Hiccups [Unknown]
  - Snoring [Unknown]
  - Musculoskeletal pain [Unknown]
  - Off label use [Unknown]
  - Anxiety [Unknown]
  - Death [Fatal]
  - Diarrhoea [Recovered/Resolved]
  - Dizziness [Unknown]
  - Weight decreased [Unknown]
  - Hypoaesthesia [Unknown]

NARRATIVE: CASE EVENT DATE: 20060922
